FAERS Safety Report 6383629-3 (Version None)
Quarter: 2009Q4

REPORT INFORMATION
  Report Type: 
  Country: None (occurrence: None)
  Receive Date: 20091001
  Receipt Date: 20090922
  Transmission Date: 20100525
  Serious: Yes (Hospitalization)
  Sender: FDA-Public Use
  Company Number: CH-AVENTIS-200920831GDDC

PATIENT
  Sex: Female

DRUGS (13)
  1. LANTUS [Suspect]
     Route: 058
     Dates: end: 20090825
  2. LANTUS [Suspect]
  3. NOVONORM [Suspect]
     Dosage: DOSE: 2 (NSPECIFIED UNIT)EVERY 3 DAYS
     Route: 048
     Dates: end: 20090825
  4. NOVONORM [Suspect]
  5. DILATREND [Suspect]
     Dosage: DOSE: 12.5 (PER 2 DAYS)
     Route: 048
  6. SINTROM [Concomitant]
  7. AMLODIPINE [Concomitant]
  8. ATACAND [Concomitant]
  9. NITRODERM [Concomitant]
  10. TORSEMIDE [Concomitant]
  11. METOLAZONE [Concomitant]
  12. OMEPRAZOLE [Concomitant]
  13. DISTRANEURIN                       /00027502/ [Concomitant]

REACTIONS (3)
  - DRUG INTERACTION [None]
  - HYPOGLYCAEMIA [None]
  - SOMNOLENCE [None]
